FAERS Safety Report 7401374-X (Version None)
Quarter: 2011Q2

REPORT INFORMATION
  Report Type: 
  Country: None (occurrence: None)
  Receive Date: 20110407
  Receipt Date: 20110404
  Transmission Date: 20111010
  Serious: Yes (Other)
  Sender: FDA-Public Use
  Company Number: US-MERCK-1104USA00285

PATIENT
  Age: 55 Year
  Sex: Female

DRUGS (2)
  1. ZOCOR [Suspect]
     Route: 048
  2. MYFORTIC [Concomitant]
     Route: 065
     Dates: start: 20070130

REACTIONS (3)
  - CEREBROVASCULAR ACCIDENT [None]
  - HEPATIC ENZYME INCREASED [None]
  - INTRACRANIAL ANEURYSM [None]
